FAERS Safety Report 6731146-0 (Version None)
Quarter: 2010Q2

REPORT INFORMATION
  Report Type: 
  Country: None (occurrence: None)
  Receive Date: 20100518
  Receipt Date: 20100506
  Transmission Date: 20101027
  Serious: Yes (Other)
  Sender: FDA-Public Use
  Company Number: US-ASTRAZENECA-2010SE16542

PATIENT
  Age: 54 Year
  Sex: Female
  Weight: 74.8 kg

DRUGS (13)
  1. CRESTOR [Suspect]
     Route: 048
  2. LIPITOR [Suspect]
     Indication: HYPERLIPIDAEMIA
     Route: 048
     Dates: start: 20031212, end: 20070401
  3. LIPITOR [Suspect]
     Route: 048
     Dates: start: 20070401, end: 20071106
  4. CALCIUM CITRATE [Concomitant]
  5. CENTRUM SILVER [Concomitant]
  6. ELOCON [Concomitant]
     Dosage: APPLY BID
  7. FISH OIL [Concomitant]
  8. FLONASE [Concomitant]
     Dosage: 0.05 MG/INC, TWO SPRAYS EACH NOSTRIL QD
  9. FOSAMAX [Concomitant]
     Route: 048
  10. PROTONIX [Concomitant]
     Route: 048
  11. ZETIA [Concomitant]
     Route: 048
  12. NIASPAN ER [Concomitant]
     Route: 048
  13. CARAFATE [Concomitant]
     Route: 048

REACTIONS (8)
  - BLOOD CREATINE PHOSPHOKINASE INCREASED [None]
  - DRUG HYPERSENSITIVITY [None]
  - HOT FLUSH [None]
  - LIVER FUNCTION TEST ABNORMAL [None]
  - MUSCLE DISORDER [None]
  - MUSCULOSKELETAL PAIN [None]
  - MYALGIA [None]
  - SKIN LESION [None]
